FAERS Safety Report 19408738 (Version 3)
Quarter: 2021Q4

REPORT INFORMATION
  Report Type: Spontaneous
  Country: DE (occurrence: DE)
  Receive Date: 20210613
  Receipt Date: 20211216
  Transmission Date: 20220303
  Serious: Yes (Other)
  Sender: FDA-Public Use
  Company Number: DE-AMGEN-DEUNI2021081582

PATIENT
  Age: 77 Year
  Sex: Female
  Weight: 66 kg

DRUGS (38)
  1. OXALIPLATIN [Suspect]
     Active Substance: OXALIPLATIN
     Indication: Colorectal cancer metastatic
     Dosage: 115 MILLIGRAM
     Route: 065
     Dates: start: 20200902
  2. OXALIPLATIN [Suspect]
     Active Substance: OXALIPLATIN
     Dosage: 144 MG (144 MILLIGRAM)
     Route: 065
     Dates: start: 20200916
  3. FLUOROURACIL [Suspect]
     Active Substance: FLUOROURACIL
     Indication: Colorectal cancer metastatic
     Dosage: 4080 MILLIGRAM
     Route: 042
     Dates: start: 20200902
  4. FLUOROURACIL [Suspect]
     Active Substance: FLUOROURACIL
     Dosage: 3840 MG (3840 MILLIGRAM)
     Route: 042
     Dates: start: 20210324
  5. VECTIBIX [Suspect]
     Active Substance: PANITUMUMAB
     Indication: Colorectal cancer metastatic
     Dosage: 400 MILLIGRAM
     Route: 042
     Dates: start: 20200902
  6. VECTIBIX [Suspect]
     Active Substance: PANITUMUMAB
     Dosage: 360 MG (360 MILLIGRAM)
     Route: 042
     Dates: start: 20210324
  7. LEUCOVORIN [Suspect]
     Active Substance: LEUCOVORIN
     Indication: Colorectal cancer metastatic
     Dosage: 680 MG (680 MILLIGRAM)
     Route: 065
     Dates: start: 20200902
  8. LEUCOVORIN [Suspect]
     Active Substance: LEUCOVORIN
     Dosage: 640 MILLIGRAM
     Route: 065
     Dates: start: 20210324
  9. SIMVASTATIN [Concomitant]
     Active Substance: SIMVASTATIN
     Indication: Metabolic disorder
     Dosage: 20 MG, QD
     Route: 048
  10. TRIMIPRAMINE MALEATE [Concomitant]
     Active Substance: TRIMIPRAMINE MALEATE
     Indication: Depression
     Dosage: 100 MG, QD (50 MILLIGRAM, BID)
     Route: 048
  11. PREDNISOLONE [Concomitant]
     Active Substance: PREDNISOLONE
     Indication: Bronchospasm
     Dosage: 200 MG, QD
     Route: 042
     Dates: start: 20201028, end: 20201028
  12. UNACID [Concomitant]
     Indication: Infection
     Dosage: 3 G, QD
     Route: 042
     Dates: start: 20210113, end: 20210115
  13. CALCIUM [Concomitant]
     Active Substance: CALCIUM
     Indication: Hypocalcaemia
     Dosage: 100 MG, QD
     Route: 048
     Dates: start: 20201118
  14. BRICANYL [Concomitant]
     Active Substance: TERBUTALINE SULFATE
     Indication: Bronchospasm
     Dosage: 0.5 MG, QD
     Route: 058
     Dates: start: 20201028, end: 20201028
  15. JONOSTERIL [Concomitant]
     Indication: Blood creatinine increased
     Dosage: 1 UNK, QD (500-1500 MILLILITER, QD)
     Route: 042
     Dates: start: 20201104
  16. LOPERAMIDE [Concomitant]
     Active Substance: LOPERAMIDE
     Indication: Diarrhoea
     Dosage: 1.86 MG  AS NECESSARY
     Route: 048
     Dates: start: 20200903
  17. ATROPINE [Concomitant]
     Active Substance: ATROPINE
     Indication: Product used for unknown indication
     Dosage: 0.25 MG, CYCLIC
     Route: 058
     Dates: start: 20201209, end: 20210421
  18. IRINOTECAN [Concomitant]
     Active Substance: IRINOTECAN
     Indication: Product used for unknown indication
     Dosage: 288-300 MILLIGRAM, CYCLICAL
     Route: 042
     Dates: start: 20201209, end: 20210505
  19. PANTOZOL [Concomitant]
     Active Substance: PANTOPRAZOLE SODIUM
     Indication: Chronic gastritis
     Dosage: 40 MG, QD
     Route: 048
     Dates: start: 20200910
  20. ONDANSETRON [Concomitant]
     Active Substance: ONDANSETRON
     Indication: Nausea
     Dosage: 8 MG, QD
     Route: 042
     Dates: start: 20201111
  21. POTASSIUM [Concomitant]
     Active Substance: POTASSIUM
     Indication: Hypokalaemia
     Dosage: 9999 UNK
     Route: 065
     Dates: start: 20210113, end: 20210118
  22. .ALPHA.-LIPOIC ACID [Concomitant]
     Active Substance: .ALPHA.-LIPOIC ACID
     Indication: Tremor
     Dosage: 600 MG
     Route: 048
     Dates: start: 20210210
  23. CALCIGEN D3 [Concomitant]
     Indication: Hypocalcaemia
     Dosage: 2500 MG, QD
     Route: 048
     Dates: start: 20201123
  24. MAGNESIUM OXIDE [Concomitant]
     Active Substance: MAGNESIUM OXIDE
     Indication: Hypomagnesaemia
     Dosage: 300 MG, QD
     Route: 048
     Dates: start: 20201118
  25. POTASSIUM CHLORIDE [Concomitant]
     Active Substance: POTASSIUM CHLORIDE
     Indication: Hypokalaemia
     Dosage: 20 ML (AS NECESSARY)
     Route: 042
     Dates: start: 20201112, end: 20201118
  26. MOVICOL [Concomitant]
     Active Substance: POLYETHYLENE GLYCOL 3350\POTASSIUM CHLORIDE\SODIUM BICARBONATE\SODIUM CHLORIDE
     Indication: Product used for unknown indication
     Dosage: 13 G (AS NECESSARY)
     Route: 048
     Dates: start: 20210120
  27. MCP [Concomitant]
     Active Substance: METOCLOPRAMIDE HYDROCHLORIDE
     Indication: Nausea
     Dosage: 10 MG (AS NECESSARY)
     Route: 048
     Dates: start: 20200902
  28. METOPROLOL [Concomitant]
     Active Substance: METOPROLOL
     Indication: Hypertension
     Dosage: 50 MG, QD
     Route: 048
     Dates: start: 2020
  29. CEFPODOXIME [Concomitant]
     Active Substance: CEFPODOXIME
     Indication: C-reactive protein increased
     Dosage: 400 MG, QD
     Route: 048
     Dates: start: 20201112, end: 20201117
  30. RIOPAN [Concomitant]
     Indication: Abdominal pain upper
     Dosage: 10 ML (AS NECESSARY)
     Route: 048
     Dates: start: 20201014
  31. FORTIMEL COMPACT [Concomitant]
     Indication: Weight decreased
     Dosage: 125 ML (AS NECESSARY)
     Route: 048
     Dates: start: 20210120
  32. MINOCYCLINE [Concomitant]
     Active Substance: MINOCYCLINE HYDROCHLORIDE
     Indication: Product used for unknown indication
     Dosage: 100 MG, QD
     Route: 048
     Dates: start: 20200902
  33. ALIZAPRIDE HYDROCHLORIDE [Concomitant]
     Active Substance: ALIZAPRIDE HYDROCHLORIDE
     Indication: Nausea
     Dosage: 50 MG, PRN
     Route: 048
     Dates: start: 20200910
  34. AMLODIPINE BESYLATE [Concomitant]
     Active Substance: AMLODIPINE BESYLATE
     Indication: Hypertension
     Dosage: 2.5 MG, QD
     Route: 048
     Dates: start: 2020, end: 20210118
  35. DEXAMETHASONE [Concomitant]
     Active Substance: DEXAMETHASONE
     Indication: Product used for unknown indication
     Dosage: 8 MG, CYCLIC
     Route: 042
     Dates: start: 20200902, end: 20210505
  36. AKYNZEO [Concomitant]
     Active Substance: NETUPITANT\PALONOSETRON HYDROCHLORIDE
     Indication: Product used for unknown indication
     Dosage: 300 MG, CYCLIC
     Route: 048
     Dates: start: 20200902, end: 20210421
  37. NOVAMIN [Concomitant]
     Indication: Pain
     Dosage: 2000 MG, QD
     Route: 048
     Dates: start: 2020
  38. SODIUM PICOSULFATE [Concomitant]
     Active Substance: SODIUM PICOSULFATE
     Indication: Constipation
     Dosage: 15 DRP, PRN
     Route: 048
     Dates: start: 20210120

REACTIONS (1)
  - Cachexia [Recovered/Resolved]

NARRATIVE: CASE EVENT DATE: 20210505
